FAERS Safety Report 9166319 (Version 2)
Quarter: 2013Q2

REPORT INFORMATION
  Report Type: Spontaneous
  Country: US (occurrence: US)
  Receive Date: 20130315
  Receipt Date: 20130610
  Transmission Date: 20140414
  Serious: Yes (Hospitalization)
  Sender: FDA-Public Use
  Company Number: US-BAYER-2013-032405

PATIENT
  Age: 36 Year
  Sex: Female
  Weight: 63.49 kg

DRUGS (1)
  1. BEYAZ [Suspect]
     Indication: CONTRACEPTION
     Dosage: UNK UNK, QD
     Route: 048
     Dates: start: 2005, end: 20130219

REACTIONS (4)
  - Pulmonary embolism [None]
  - Dyspnoea [None]
  - Tachycardia [None]
  - Chest pain [None]
